FAERS Safety Report 12471882 (Version 1)
Quarter: 2016Q2

REPORT INFORMATION
  Report Type: Report from Study
  Country: NL (occurrence: NL)
  Receive Date: 20160616
  Receipt Date: 20160616
  Transmission Date: 20160815
  Serious: Yes (Hospitalization)
  Sender: FDA-Public Use
  Company Number: NL-PFIZER INC-2016294585

PATIENT
  Sex: Male
  Weight: 82 kg

DRUGS (1)
  1. CRIZOTINIB [Suspect]
     Active Substance: CRIZOTINIB
     Indication: NON-SMALL CELL LUNG CANCER METASTATIC
     Dosage: 250 UG, 2X/DAY
     Dates: start: 20140417, end: 20150701

REACTIONS (7)
  - Fatigue [Unknown]
  - Vomiting [Unknown]
  - Oedema [Unknown]
  - Nausea [Unknown]
  - Decreased appetite [Unknown]
  - Chest pain [Unknown]
  - Diarrhoea [Unknown]
